FAERS Safety Report 20992817 (Version 9)
Quarter: 2024Q1

REPORT INFORMATION
  Report Type: Spontaneous
  Country: US (occurrence: US)
  Receive Date: 20220622
  Receipt Date: 20240208
  Transmission Date: 20240410
  Serious: Yes (Other)
  Sender: FDA-Public Use
  Company Number: US-BRISTOL-MYERS SQUIBB COMPANY-2022-062002

PATIENT
  Age: 80 Year
  Sex: Male

DRUGS (3)
  1. REVLIMID [Suspect]
     Active Substance: LENALIDOMIDE
     Indication: Plasma cell myeloma
     Route: 048
     Dates: start: 202102
  2. REVLIMID [Suspect]
     Active Substance: LENALIDOMIDE
     Indication: Plasma cell myeloma in remission
     Route: 048
     Dates: start: 202009
  3. REVLIMID [Suspect]
     Active Substance: LENALIDOMIDE
     Route: 048
     Dates: start: 20200806

REACTIONS (11)
  - White blood cell count decreased [Unknown]
  - Diarrhoea [Unknown]
  - Platelet count decreased [Unknown]
  - Heart rate decreased [Unknown]
  - Haemoglobin decreased [Unknown]
  - Abdominal discomfort [Recovering/Resolving]
  - Red blood cell count decreased [Unknown]
  - Appetite disorder [Unknown]
  - Fatigue [Unknown]
  - Chest pain [Unknown]
  - Skin cancer [Unknown]

NARRATIVE: CASE EVENT DATE: 20200806
